FAERS Safety Report 13926276 (Version 2)
Quarter: 2017Q3

REPORT INFORMATION
  Report Type: Spontaneous
  Country: US (occurrence: US)
  Receive Date: 20170831
  Receipt Date: 20170927
  Transmission Date: 20171127
  Serious: Yes (Other)
  Sender: FDA-Public Use
  Company Number: US-PFIZER INC-2017375604

PATIENT
  Age: 53 Year
  Sex: Male

DRUGS (2)
  1. XELJANZ XR [Suspect]
     Active Substance: TOFACITINIB CITRATE
     Indication: RHEUMATOID ARTHRITIS
     Dosage: 11 MG, 1X/DAY
     Route: 048
  2. MEDROL [Suspect]
     Active Substance: METHYLPREDNISOLONE
     Dosage: 4 MG, UNK

REACTIONS (25)
  - Deafness bilateral [Unknown]
  - Arthralgia [Unknown]
  - Erectile dysfunction [Unknown]
  - Blood pressure abnormal [Unknown]
  - Blood glucose increased [Unknown]
  - Feeling hot [Unknown]
  - Fatigue [Unknown]
  - Joint swelling [Unknown]
  - Red blood cell sedimentation rate increased [Unknown]
  - Weight increased [Unknown]
  - Gait disturbance [Unknown]
  - Musculoskeletal stiffness [Unknown]
  - Joint stiffness [Unknown]
  - Decreased appetite [Unknown]
  - Dizziness [Unknown]
  - Sexual dysfunction [Unknown]
  - Pollakiuria [Unknown]
  - Globulins increased [Unknown]
  - Hypoaesthesia [Unknown]
  - Neuropathy peripheral [Unknown]
  - Nocturia [Unknown]
  - C-reactive protein increased [Unknown]
  - Asthenia [Unknown]
  - Basal cell carcinoma [Unknown]
  - Paraesthesia [Unknown]
